FAERS Safety Report 6162968-5 (Version None)
Quarter: 2009Q2

REPORT INFORMATION
  Report Type: 
  Country: None (occurrence: None)
  Receive Date: 20090420
  Receipt Date: 20090407
  Transmission Date: 20091009
  Serious: Yes (Death)
  Sender: FDA-Public Use
  Company Number: 233793K09USA

PATIENT
  Age: 61 Year
  Sex: Female

DRUGS (1)
  1. REBIF [Suspect]
     Indication: MULTIPLE SCLEROSIS
     Dosage: SUBCUTANEOUS
     Route: 058
     Dates: start: 20050405, end: 20080901

REACTIONS (4)
  - DELIRIUM [None]
  - INFECTION [None]
  - RENAL DISORDER [None]
  - WOUND INFECTION STAPHYLOCOCCAL [None]
